FAERS Safety Report 15864011 (Version 1)
Quarter: 2019Q1

REPORT INFORMATION
  Report Type: Spontaneous
  Country: FR (occurrence: FR)
  Receive Date: 20190124
  Receipt Date: 20190124
  Transmission Date: 20190417
  Serious: Yes (Other)
  Sender: FDA-Public Use
  Company Number: FR-PFIZER INC-2019029014

PATIENT
  Age: 70 Year
  Sex: Male

DRUGS (1)
  1. SOMAVERT [Suspect]
     Active Substance: PEGVISOMANT
     Indication: ACROMEGALY
     Dosage: UNK

REACTIONS (3)
  - Cholelithiasis [Recovered/Resolved]
  - Gamma-glutamyltransferase increased [Recovered/Resolved]
  - Transaminases increased [Recovered/Resolved]
